FAERS Safety Report 19506920 (Version 2)
Quarter: 2021Q3

REPORT INFORMATION
  Report Type: Report from Study
  Country: AU (occurrence: AU)
  Receive Date: 20210708
  Receipt Date: 20210719
  Transmission Date: 20211014
  Serious: Yes (Death, Hospitalization)
  Sender: FDA-Public Use
  Company Number: NVSC2021AU141333

PATIENT
  Sex: Female

DRUGS (1)
  1. INC280 [Suspect]
     Active Substance: CAPMATINIB
     Indication: NON-SMALL CELL LUNG CANCER METASTATIC
     Dosage: 400 MG, BID (TABLET)
     Route: 048
     Dates: start: 20210527

REACTIONS (6)
  - Malignant neoplasm progression [Fatal]
  - Gastrointestinal haemorrhage [Fatal]
  - Non-small cell lung cancer metastatic [Fatal]
  - Bone pain [Fatal]
  - Spinal cord compression [Fatal]
  - Dyspnoea [Fatal]
